FAERS Safety Report 22253660 (Version 2)
Quarter: 2024Q3

REPORT INFORMATION
  Report Type: Spontaneous
  Country: CA (occurrence: CA)
  Receive Date: 20230426
  Receipt Date: 20240823
  Transmission Date: 20241016
  Serious: Yes (Other)
  Sender: AUROBINDO
  Company Number: CA-AUROBINDO-AUR-APL-2023-032400

PATIENT
  Age: 47 Year
  Sex: Female

DRUGS (1)
  1. MODAFINIL [Suspect]
     Active Substance: MODAFINIL
     Indication: Myotonic dystrophy
     Dosage: 200 MILLIGRAM, TWO TIMES A DAY
     Route: 048

REACTIONS (1)
  - Hypersomnia [Recovered/Resolved]
